FAERS Safety Report 7357020-7 (Version None)
Quarter: 2011Q1

REPORT INFORMATION
  Report Type: 
  Country: None (occurrence: None)
  Receive Date: 20110310
  Receipt Date: 20110310
  Transmission Date: 20110831
  Serious: Yes (Hospitalization)
  Sender: FDA-Public Use
  Company Number: None

PATIENT
  Age: 58 Year
  Sex: 0
  Weight: 84.2 kg

DRUGS (2)
  1. ASPIRIN [Suspect]
     Dosage: 81 MG EVERY DAY PO
     Route: 048
     Dates: start: 20110216, end: 20110223
  2. CLOPIDOGREL [Suspect]
     Indication: SURGERY
     Dosage: 75 MG EVERY DAY PO
     Route: 048
     Dates: start: 20110216, end: 20110223

REACTIONS (2)
  - HAEMOGLOBIN DECREASED [None]
  - GASTRIC HAEMORRHAGE [None]
